FAERS Safety Report 8875968 (Version 2)
Quarter: 2012Q4

REPORT INFORMATION
  Report Type: 
  Country: US (occurrence: US)
  Receive Date: 20121023
  Receipt Date: 20121105
  Transmission Date: 20130627
  Serious: Yes (Other)
  Sender: FDA-Public Use
  Company Number: US-ROCHE-GNE213401

PATIENT
  Age: 44 Year
  Sex: Male

DRUGS (2)
  1. RAPTIVA [Suspect]
     Indication: PUSTULAR PSORIASIS
     Dosage: 63 mg, Unknown
     Route: 065
     Dates: start: 200410
  2. RAPTIVA [Suspect]
     Indication: PSORIASIS

REACTIONS (4)
  - Hypernatraemia [Not Recovered/Not Resolved]
  - Alanine aminotransferase increased [Unknown]
  - Condition aggravated [Unknown]
  - Multiple sclerosis [Unknown]
